FAERS Safety Report 13737275 (Version 3)
Quarter: 2017Q3

REPORT INFORMATION
  Report Type: Spontaneous
  Country: US (occurrence: US)
  Receive Date: 20170710
  Receipt Date: 20170907
  Transmission Date: 20171127
  Serious: Yes (Hospitalization)
  Sender: FDA-Public Use
  Company Number: US-JNJFOC-20170704722

PATIENT
  Age: 48 Year
  Sex: Female

DRUGS (1)
  1. XARELTO [Suspect]
     Active Substance: RIVAROXABAN
     Indication: PULMONARY EMBOLISM
     Route: 048
     Dates: start: 20131212, end: 20140705

REACTIONS (3)
  - Dysfunctional uterine bleeding [Unknown]
  - Pulmonary embolism [Unknown]
  - Treatment failure [Unknown]

NARRATIVE: CASE EVENT DATE: 20140705
